FAERS Safety Report 11980846 (Version 1)
Quarter: 2016Q1

REPORT INFORMATION
  Report Type: Spontaneous
  Country: FR (occurrence: FR)
  Receive Date: 20160129
  Receipt Date: 20160129
  Transmission Date: 20160526
  Serious: Yes (Disabling)
  Sender: FDA-Public Use
  Company Number: FR-ABBVIE-02P-056-0196481-00

PATIENT
  Age: 3 Month
  Sex: Male

DRUGS (8)
  1. NORVIR [Suspect]
     Active Substance: RITONAVIR
     Indication: EXPOSURE VIA BODY FLUID
     Route: 050
  2. NORVIR [Suspect]
     Active Substance: RITONAVIR
     Indication: FOETAL EXPOSURE DURING PREGNANCY
  3. CRIXIVAN [Suspect]
     Active Substance: INDINAVIR SULFATE
     Indication: FOETAL EXPOSURE DURING PREGNANCY
  4. ZERIT [Suspect]
     Active Substance: STAVUDINE
     Indication: FOETAL EXPOSURE DURING PREGNANCY
  5. ZIAGEN [Suspect]
     Active Substance: ABACAVIR SULFATE
     Indication: FOETAL EXPOSURE DURING PREGNANCY
  6. ZIAGEN [Suspect]
     Active Substance: ABACAVIR SULFATE
     Indication: EXPOSURE VIA BODY FLUID
     Route: 050
  7. CRIXIVAN [Suspect]
     Active Substance: INDINAVIR SULFATE
     Indication: EXPOSURE VIA BODY FLUID
     Route: 050
  8. ZERIT [Suspect]
     Active Substance: STAVUDINE
     Indication: EXPOSURE VIA BODY FLUID
     Route: 050

REACTIONS (5)
  - Ear malformation [Not Recovered/Not Resolved]
  - Paternal drugs affecting foetus [Unknown]
  - Foetal growth restriction [Not Recovered/Not Resolved]
  - Premature baby [Not Recovered/Not Resolved]
  - Foetal exposure during pregnancy [Unknown]

NARRATIVE: CASE EVENT DATE: 20010918
